FAERS Safety Report 8111388-2 (Version None)
Quarter: 2012Q1

REPORT INFORMATION
  Report Type: 
  Country: None (occurrence: None)
  Receive Date: 20120203
  Receipt Date: 20111028
  Transmission Date: 20120608
  Serious: No
  Sender: FDA-Public Use
  Company Number: US-GLAXOSMITHKLINE-A0951560A

PATIENT
  Sex: Male

DRUGS (4)
  1. CLONAZEPAM [Concomitant]
  2. ADDERALL 5 [Concomitant]
  3. LAMICTAL [Suspect]
     Indication: BIPOLAR DISORDER
     Dosage: 100MG TWICE PER DAY
     Route: 048
  4. HYDROXYZINE [Concomitant]

REACTIONS (1)
  - DRUG INEFFECTIVE [None]
